FAERS Safety Report 9988608 (Version 3)
Quarter: 2014Q1

REPORT INFORMATION
  Report Type: Spontaneous
  Country: US (occurrence: US)
  Receive Date: 20140310
  Receipt Date: 20140317
  Transmission Date: 20141002
  Serious: Yes (Death, Hospitalization, Other)
  Sender: FDA-Public Use
  Company Number: US-009507513-1201USA02250

PATIENT
  Age: 55 Year
  Sex: Female

DRUGS (21)
  1. SINGULAIR [Suspect]
     Route: 048
  2. VYTORIN [Suspect]
     Route: 048
  3. PRINIVIL [Interacting]
     Route: 048
  4. LISINOPRIL [Interacting]
     Route: 048
  5. PRAVASTATIN SODIUM [Interacting]
     Route: 048
  6. TAGAMET HB [Interacting]
     Route: 048
  7. NAPROXEN [Interacting]
     Route: 048
  8. GABAPENTIN [Interacting]
     Route: 048
  9. HYDROCODONE [Interacting]
     Route: 048
  10. OXYCODONE [Interacting]
     Route: 048
  11. ALPRAZOLAM [Interacting]
     Route: 048
  12. CYCLOBENZAPRINE HYDROCHLORIDE [Interacting]
     Route: 048
  13. COCAINE [Interacting]
     Route: 048
  14. KADIAN [Interacting]
     Route: 048
  15. GEMFIBROZIL [Interacting]
     Route: 048
  16. CIMETIDINE [Interacting]
     Route: 048
  17. CIMETIDINE HYDROCHLORIDE [Interacting]
     Route: 048
  18. HYDROCODONE BITARTRATE [Interacting]
     Route: 048
  19. OXYCODONE HYDROCHLORIDE [Interacting]
     Route: 048
  20. MORPHINE [Interacting]
     Route: 048
  21. CIMETIDINE [Interacting]

REACTIONS (7)
  - Death [Fatal]
  - Toxicity to various agents [Fatal]
  - Hypotension [Fatal]
  - Poisoning [Fatal]
  - Intentional drug misuse [Fatal]
  - Intentional overdose [Fatal]
  - Overdose [Fatal]
